FAERS Safety Report 5734575-7 (Version None)
Quarter: 2008Q2

REPORT INFORMATION
  Report Type: 
  Country: None (occurrence: None)
  Receive Date: 20080508
  Receipt Date: 20080428
  Transmission Date: 20081010
  Serious: Yes (Hospitalization)
  Sender: FDA-Public Use
  Company Number: 233989J08USA

PATIENT
  Age: 66 Year
  Sex: Male
  Weight: 72.5755 kg

DRUGS (4)
  1. REBIF [Suspect]
     Indication: MULTIPLE SCLEROSIS
     Dates: start: 20060101, end: 20080401
  2. ATENOLOL [Concomitant]
  3. HYDROCHLOROTHIAZIDE [Concomitant]
  4. BACLOFEN [Concomitant]

REACTIONS (6)
  - BLADDER DISORDER [None]
  - PNEUMONIA [None]
  - PULMONARY THROMBOSIS [None]
  - RENAL FAILURE [None]
  - URINARY TRACT INFECTION [None]
  - VOCAL CORD DISORDER [None]
